FAERS Safety Report 9410695 (Version 1)
Quarter: 2013Q3

REPORT INFORMATION
  Report Type: Spontaneous
  Country: US (occurrence: US)
  Receive Date: 20130719
  Receipt Date: 20130719
  Transmission Date: 20140515
  Serious: Yes (Disabling)
  Sender: FDA-Public Use
  Company Number: US-MERCK-1307USA007556

PATIENT
  Age: 37 Year
  Sex: Male

DRUGS (2)
  1. SAPHRIS [Suspect]
     Dosage: 5 MG X 2 DAY
     Route: 048
  2. LAMICTAL [Concomitant]

REACTIONS (7)
  - Impaired work ability [Unknown]
  - Energy increased [Unknown]
  - Restlessness [Unknown]
  - Insomnia [Unknown]
  - Dysphagia [Unknown]
  - Sleep disorder [Unknown]
  - Excessive exercise [Unknown]
